FAERS Safety Report 8254809 (Version 3)
Quarter: 2012Q4

REPORT INFORMATION
  Report Type: 
  Country: US (occurrence: US)
  Receive Date: 20111118
  Receipt Date: 20120921
  Transmission Date: 20130627
  Serious: Yes (Hospitalization)
  Sender: FDA-Public Use
  Company Number: US-BAYER-2011-108468

PATIENT
  Age: 37 Year
  Sex: Female
  Weight: 82.99 kg

DRUGS (2)
  1. YAZ [Suspect]
     Indication: CONTRACEPTION
     Dosage: UNK
     Dates: start: 200609, end: 20091202
  2. LEXAPRO [Concomitant]
     Indication: ANXIETY
     Dosage: 1 DF, QD, on/off
     Dates: start: 2006

REACTIONS (10)
  - Deep vein thrombosis [None]
  - Injury [None]
  - Pain [None]
  - Emotional distress [None]
  - Anhedonia [None]
  - Arthralgia [None]
  - Pain in extremity [None]
  - Oedema peripheral [None]
  - Anxiety [None]
  - Fear [None]
